FAERS Safety Report 4643941-2 (Version None)
Quarter: 2005Q2

REPORT INFORMATION
  Report Type: 
  Country: None (occurrence: None)
  Receive Date: 20050425
  Receipt Date: 20050420
  Transmission Date: 20051028
  Serious: Yes (Hospitalization)
  Sender: FDA-Public Use
  Company Number: PHRM2005FR01349

PATIENT
  Age: 50 Year
  Sex: Female

DRUGS (3)
  1. LASILIX [Suspect]
     Indication: HYPERTENSION
  2. MODURETIC 5-50 [Suspect]
     Indication: HYPERTENSION
     Route: 048
  3. TRILEPTAL [Suspect]
     Indication: EPILEPSY
     Route: 048

REACTIONS (3)
  - DRUG INTERACTION [None]
  - HYPERTENSIVE CRISIS [None]
  - HYPONATRAEMIA [None]
